FAERS Safety Report 20893237 (Version 1)
Quarter: 2022Q2

REPORT INFORMATION
  Report Type: Spontaneous
  Country: US (occurrence: US)
  Receive Date: 20220531
  Receipt Date: 20220531
  Transmission Date: 20220721
  Serious: No
  Sender: FDA-Public Use
  Company Number: US-ADVANZ PHARMA-202204002855

PATIENT

DRUGS (1)
  1. HYDROXYCHLOROQUINE SULFATE [Suspect]
     Active Substance: HYDROXYCHLOROQUINE SULFATE
     Indication: Antiphospholipid antibodies
     Dosage: 200 MG
     Route: 065
     Dates: start: 20220211

REACTIONS (5)
  - Abdominal distension [Unknown]
  - Blood bilirubin increased [Unknown]
  - Headache [Unknown]
  - Alopecia [Unknown]
  - Wrong technique in product usage process [Unknown]

NARRATIVE: CASE EVENT DATE: 20220213
